FAERS Safety Report 4560928-9 (Version None)
Quarter: 2005Q1

REPORT INFORMATION
  Report Type: 
  Country: None (occurrence: None)
  Receive Date: 20050126
  Receipt Date: 20040120
  Transmission Date: 20050727
  Serious: No
  Sender: FDA-Public Use
  Company Number: US-BRISTOL-MYERS SQUIBB COMPANY-12484812

PATIENT
  Age: 56 Year
  Sex: Female

DRUGS (5)
  1. GLUCOPHAGE [Suspect]
  2. AVANDIA [Suspect]
     Indication: DIABETES MELLITUS NON-INSULIN-DEPENDENT
     Route: 048
     Dates: start: 20020101, end: 20030101
  3. AMARYL [Concomitant]
  4. ZESTRIL [Concomitant]
  5. ZOCOR [Concomitant]

REACTIONS (1)
  - OEDEMA PERIPHERAL [None]
